FAERS Safety Report 12724266 (Version 4)
Quarter: 2016Q4

REPORT INFORMATION
  Report Type: Report from Study
  Country: US (occurrence: US)
  Receive Date: 20160908
  Receipt Date: 20161202
  Transmission Date: 20170207
  Serious: Yes (Hospitalization, Other)
  Sender: FDA-Public Use
  Company Number: US-GILEAD-2016-0232179

PATIENT
  Age: 69 Year
  Sex: Male
  Weight: 92.52 kg

DRUGS (9)
  1. LASIX [Concomitant]
     Active Substance: FUROSEMIDE
  2. LIPITOR [Concomitant]
     Active Substance: ATORVASTATIN CALCIUM
  3. SYMBICORT [Concomitant]
     Active Substance: BUDESONIDE\FORMOTEROL FUMARATE DIHYDRATE
  4. CLARINEX-D [Concomitant]
     Active Substance: DESLORATADINE\PSEUDOEPHEDRINE SULFATE
  5. REVATIO [Concomitant]
     Active Substance: SILDENAFIL CITRATE
  6. ASPIRIN                            /00002701/ [Concomitant]
     Active Substance: ASPIRIN
  7. ACCUNEB [Concomitant]
     Active Substance: ALBUTEROL SULFATE
  8. SPIRIVA [Concomitant]
     Active Substance: TIOTROPIUM BROMIDE MONOHYDRATE
  9. AMBRISENTAN [Suspect]
     Active Substance: AMBRISENTAN
     Indication: PULMONARY ARTERIAL HYPERTENSION
     Dosage: 10 MG, QD
     Route: 048

REACTIONS (3)
  - Atrial fibrillation [Unknown]
  - Pneumonia [Recovering/Resolving]
  - Weight decreased [Recovered/Resolved]

NARRATIVE: CASE EVENT DATE: 201608
